FAERS Safety Report 19894543 (Version 1)
Quarter: 2021Q3

REPORT INFORMATION
  Report Type: Report from Study
  Country: CN (occurrence: CN)
  Receive Date: 20210928
  Receipt Date: 20210928
  Transmission Date: 20211014
  Serious: Yes (Hospitalization, Other)
  Sender: FDA-Public Use
  Company Number: CN-JNJFOC-A-CH2019-192976

PATIENT
  Age: 29 Year
  Sex: Male
  Weight: 69 kg

DRUGS (3)
  1. MACITENTAN [Suspect]
     Active Substance: MACITENTAN
     Indication: PULMONARY HYPERTENSION
     Dosage: 10 MG, OD
     Route: 048
     Dates: start: 20151102
  2. BERAPROST [Concomitant]
     Active Substance: BERAPROST
     Dosage: UNK
     Dates: start: 20141230
  3. WARFARIN [Concomitant]
     Active Substance: WARFARIN
     Dosage: UNK
     Dates: start: 20141106

REACTIONS (7)
  - Blood bilirubin increased [Unknown]
  - Haemoglobin decreased [Recovered/Resolved]
  - Haemoptysis [Recovered/Resolved]
  - Condition aggravated [Not Recovered/Not Resolved]
  - Pulmonary hypertension [Not Recovered/Not Resolved]
  - Pneumonia [Recovered/Resolved]
  - Cor pulmonale [Recovered/Resolved]

NARRATIVE: CASE EVENT DATE: 20190709
